FAERS Safety Report 23697785 (Version 1)
Quarter: 2024Q2

REPORT INFORMATION
  Report Type: Spontaneous
  Country: US (occurrence: US)
  Receive Date: 20240402
  Receipt Date: 20240402
  Transmission Date: 20240716
  Serious: No
  Sender: FDA-Public Use
  Company Number: US-MYLANLABS-2024M1025090

PATIENT
  Sex: Male
  Weight: 88.9 kg

DRUGS (1)
  1. ATENOLOL [Suspect]
     Active Substance: ATENOLOL
     Indication: Palpitations
     Dosage: 100 MILLIGRAM, QD
     Route: 065
     Dates: start: 20240224

REACTIONS (2)
  - Palpitations [Unknown]
  - Off label use [Unknown]
